FAERS Safety Report 11218591 (Version 1)
Quarter: 2015Q2

REPORT INFORMATION
  Report Type: Spontaneous
  Country: JP (occurrence: JP)
  Receive Date: 20150625
  Receipt Date: 20150625
  Transmission Date: 20150821
  Serious: Yes (Death, Hospitalization)
  Sender: FDA-Public Use
  Company Number: JP-NOVOPROD-453724

PATIENT
  Age: 69 Year
  Sex: Male
  Weight: 60 kg

DRUGS (13)
  1. NOVOSEVEN [Suspect]
     Active Substance: COAGULATION FACTOR VIIA RECOMBINANT HUMAN
     Dosage: 6 MG X 4 TIMES
     Route: 042
     Dates: start: 20150419, end: 20150420
  2. MEROPEN                            /01250502/ [Concomitant]
     Route: 042
     Dates: start: 20150603
  3. SOLU-CORTEF [Concomitant]
     Active Substance: HYDROCORTISONE SODIUM SUCCINATE
     Route: 042
     Dates: start: 20150603
  4. DOMININ [Concomitant]
     Route: 042
  5. NOVOSEVEN [Suspect]
     Active Substance: COAGULATION FACTOR VIIA RECOMBINANT HUMAN
     Dosage: 6 MG X 2 TIMES
     Route: 042
     Dates: start: 20150421, end: 20150422
  6. NOVOSEVEN [Suspect]
     Active Substance: COAGULATION FACTOR VIIA RECOMBINANT HUMAN
     Indication: ACQUIRED HAEMOPHILIA
     Dosage: 6 MG X12 TIMES
     Route: 042
     Dates: start: 20150414, end: 20150416
  7. POLYGLOBIN N [Concomitant]
     Route: 042
     Dates: start: 20150603
  8. NOVOSEVEN [Suspect]
     Active Substance: COAGULATION FACTOR VIIA RECOMBINANT HUMAN
     Dosage: 6 MG X 8 TIMES
     Route: 042
     Dates: start: 20150417
  9. VITAMIN K [Concomitant]
     Active Substance: PHYTONADIONE
     Route: 065
  10. ANAEMETRO [Concomitant]
     Active Substance: METRONIDAZOLE
     Route: 042
     Dates: start: 20150603
  11. NICORANDIL [Concomitant]
     Active Substance: NICORANDIL
     Route: 065
  12. TAKEPRON [Concomitant]
     Active Substance: LANSOPRAZOLE
     Route: 048
     Dates: start: 20150603
  13. NOVOSEVEN [Suspect]
     Active Substance: COAGULATION FACTOR VIIA RECOMBINANT HUMAN
     Dosage: 6 MG X 6 TIMES
     Route: 042
     Dates: start: 20150418

REACTIONS (1)
  - Gastrointestinal perforation [Fatal]

NARRATIVE: CASE EVENT DATE: 20150515
